FAERS Safety Report 9225345 (Version 1)
Quarter: 2013Q2

REPORT INFORMATION
  Report Type: Report from Study
  Country: US (occurrence: US)
  Receive Date: 20130411
  Receipt Date: 20130411
  Transmission Date: 20140414
  Serious: Yes (Other)
  Sender: FDA-Public Use
  Company Number: US-ROCHE-1210303

PATIENT
  Sex: 0

DRUGS (1)
  1. TENECTEPLASE [Suspect]
     Indication: MEDICAL DEVICE COMPLICATION
     Dosage: STRENGTH 2 MG/2 ML
     Route: 050

REACTIONS (2)
  - Deep vein thrombosis [Unknown]
  - Thrombosis in device [Unknown]
